FAERS Safety Report 6732212-6 (Version None)
Quarter: 2010Q2

REPORT INFORMATION
  Report Type: 
  Country: None (occurrence: None)
  Receive Date: 20100519
  Receipt Date: 20100511
  Transmission Date: 20101027
  Serious: Yes (Other)
  Sender: FDA-Public Use
  Company Number: A0807939A

PATIENT
  Age: 72 Year
  Sex: Female
  Weight: 95.5 kg

DRUGS (3)
  1. AVANDIA [Suspect]
     Route: 048
     Dates: start: 19990101, end: 20020101
  2. LOTENSIN [Concomitant]
  3. LIPITOR [Concomitant]

REACTIONS (2)
  - CARDIAC FAILURE CONGESTIVE [None]
  - MYOCARDIAL INFARCTION [None]
